FAERS Safety Report 5099252-7 (Version None)
Quarter: 2006Q3

REPORT INFORMATION
  Report Type: 
  Country: None (occurrence: None)
  Receive Date: 20060731
  Receipt Date: 20050617
  Transmission Date: 20061208
  Serious: Yes (Other)
  Sender: FDA-Public Use
  Company Number: US-2005-006567

PATIENT
  Sex: Female
  Weight: 61.2 kg

DRUGS (1)
  1. MAGNEVIST [Suspect]
     Indication: NUCLEAR MAGNETIC RESONANCE IMAGING
     Dosage: 20 ML, 1 DOSE, INTRAVENOUS
     Route: 042
     Dates: start: 20050424, end: 20050424

REACTIONS (13)
  - CHEST DISCOMFORT [None]
  - CHEST PAIN [None]
  - ERYTHEMA [None]
  - EYE IRRITATION [None]
  - EYE PRURITUS [None]
  - FLUSHING [None]
  - HYPERSENSITIVITY [None]
  - PARAESTHESIA [None]
  - PRURITUS [None]
  - SKIN WARM [None]
  - TACHYCARDIA [None]
  - THROAT IRRITATION [None]
  - THROAT TIGHTNESS [None]
